FAERS Safety Report 8415336-7 (Version None)
Quarter: 2012Q2

REPORT INFORMATION
  Report Type: 
  Country: None (occurrence: None)
  Receive Date: 20120606
  Receipt Date: 20120529
  Transmission Date: 20120825
  Serious: Yes (Other)
  Sender: FDA-Public Use
  Company Number: PHHY2012FR047363

PATIENT
  Sex: Male

DRUGS (17)
  1. DEPAKOTE [Concomitant]
  2. CLOZAPINE [Suspect]
     Indication: SCHIZOPHRENIA
     Dates: end: 20120313
  3. GELSEMIUM [Concomitant]
  4. METFORMIN HYDROCHLORIDE [Concomitant]
  5. ARNICA [Concomitant]
  6. AMARA [Concomitant]
  7. ATARAX [Concomitant]
  8. BISOPROLOL FUMARATE [Concomitant]
  9. METFORMIN HCL [Concomitant]
  10. CLOZAPINE [Suspect]
     Dosage: 250 MG, UNK
     Dates: start: 20120515
  11. TRIMEPRAZINE TARTRATE [Concomitant]
  12. RAMIPRIL [Concomitant]
  13. LANSOPRAZOLE [Concomitant]
  14. NOROXIN [Concomitant]
  15. CLOZAPINE [Suspect]
     Dosage: 200 MG, QD
     Dates: start: 20120423
  16. LEPTICUR [Concomitant]
  17. OXAZEPAM [Concomitant]

REACTIONS (6)
  - ABNORMAL BEHAVIOUR [None]
  - NERVOUS SYSTEM DISORDER [None]
  - CONFUSIONAL STATE [None]
  - AFFECTIVE DISORDER [None]
  - HYPOTONIA [None]
  - PETIT MAL EPILEPSY [None]
